FAERS Safety Report 7426810-4 (Version None)
Quarter: 2011Q2

REPORT INFORMATION
  Report Type: 
  Country: None (occurrence: None)
  Receive Date: 20110420
  Receipt Date: 20110415
  Transmission Date: 20111010
  Serious: Yes (Hospitalization, Other)
  Sender: FDA-Public Use
  Company Number: US-MERCK-1101USA03188

PATIENT
  Age: 68 Year
  Sex: Male
  Weight: 81 kg

DRUGS (6)
  1. JANUVIA [Suspect]
     Indication: TYPE 2 DIABETES MELLITUS
     Route: 048
     Dates: start: 20100501, end: 20110201
  2. AMLODIPINE [Concomitant]
     Route: 048
  3. METFORMIN [Concomitant]
     Route: 048
  4. SIMVASTATIN [Concomitant]
     Route: 048
  5. OMEPRAZOLE [Concomitant]
     Route: 048
  6. PLAVIX [Concomitant]
     Route: 048

REACTIONS (5)
  - LIPASE INCREASED [None]
  - MYOCARDIAL INFARCTION [None]
  - ANGINA PECTORIS [None]
  - BLOOD AMYLASE INCREASED [None]
  - ARTHROPATHY [None]
